FAERS Safety Report 10785781 (Version 5)
Quarter: 2015Q4

REPORT INFORMATION
  Report Type: Spontaneous
  Country: US (occurrence: None)
  Receive Date: 20150209
  Receipt Date: 20151014
  Transmission Date: 20160304
  Serious: Yes (Other)
  Sender: FDA-Public Use
  Company Number: ADR-2014-02465

PATIENT
  Age: 59 Year
  Sex: Female

DRUGS (2)
  1. BACLOFEN INTRATHECAL 2000 MCG/ML [Suspect]
     Active Substance: BACLOFEN
     Indication: MUSCLE SPASTICITY
     Dosage: 800 MCG/DAY
  2. BUPIVACAINE (INTRATHECAL) 2000 MCG/ML [Suspect]
     Active Substance: BUPIVACAINE
     Indication: MUSCLE SPASTICITY
     Dosage: 12 MCG/DAY

REACTIONS (15)
  - Muscle spasms [None]
  - Lumbar vertebral fracture [None]
  - No therapeutic response [None]
  - Self-injurious ideation [None]
  - Urine alcohol test positive [None]
  - Therapeutic response decreased [None]
  - Asthenia [None]
  - Muscle spasticity [None]
  - Pain [None]
  - Tooth fracture [None]
  - Stress [None]
  - Device battery issue [None]
  - Performance status decreased [None]
  - Malaise [None]
  - Pneumonia [None]
